FAERS Safety Report 5908196-7 (Version None)
Quarter: 2008Q4

REPORT INFORMATION
  Report Type: 
  Country: None (occurrence: None)
  Receive Date: 20081003
  Receipt Date: 20080925
  Transmission Date: 20090506
  Serious: Yes (Hospitalization, Other)
  Sender: FDA-Public Use
  Company Number: JP-ALLERGAN-0811382US

PATIENT
  Sex: Female

DRUGS (5)
  1. BOTOX [Suspect]
     Indication: FACIAL SPASM
     Dosage: 15 UNITS, SINGLE
     Route: 030
     Dates: start: 20020123, end: 20020123
  2. BOTOX [Suspect]
     Dosage: 15 UNITS, SINGLE
     Route: 030
     Dates: start: 20020515, end: 20020515
  3. BOTOX [Suspect]
     Dosage: 15 UNITS, SINGLE
     Route: 030
     Dates: start: 20020925, end: 20020925
  4. BOTOX [Suspect]
     Dosage: 15 UNITS, SINGLE
     Route: 030
     Dates: start: 20030110, end: 20030110
  5. ETHYL LOFLAZEPATE [Concomitant]
     Indication: ANXIETY DISORDER
     Route: 048
     Dates: start: 20020130, end: 20020220

REACTIONS (1)
  - CEREBRAL INFARCTION [None]
